FAERS Safety Report 11519895 (Version 1)
Quarter: 2015Q3

REPORT INFORMATION
  Report Type: Spontaneous
  Country: US (occurrence: None)
  Receive Date: 20150917
  Receipt Date: 20150917
  Transmission Date: 20151125
  Serious: No
  Sender: FDA-Public Use
  Company Number: None

PATIENT
  Age: 76 Year
  Sex: Female
  Weight: 92.53 kg

DRUGS (5)
  1. MED FOR BLOOD PRESSURE [Concomitant]
  2. VITAMIN D [Concomitant]
     Active Substance: CHOLECALCIFEROL
  3. LIDODERM 5 [Suspect]
     Active Substance: LIDOCAINE
     Indication: BACK PAIN
     Dosage: A PATCH ONCE DAILY TWICE
     Dates: start: 20150827, end: 20150829
  4. VITAMIN C [Concomitant]
     Active Substance: ASCORBIC ACID
  5. MED FOR DIABETES [Concomitant]

REACTIONS (1)
  - Application site rash [None]

NARRATIVE: CASE EVENT DATE: 20150828
